FAERS Safety Report 21654306 (Version 1)
Quarter: 2022Q4

REPORT INFORMATION
  Report Type: Spontaneous
  Country: US (occurrence: US)
  Receive Date: 20221129
  Receipt Date: 20221129
  Transmission Date: 20230113
  Serious: No
  Sender: FDA-Public Use
  Company Number: US-SANOFI-01373596

PATIENT
  Age: 2 Year
  Sex: Female

DRUGS (3)
  1. INSULIN GLARGINE [Suspect]
     Active Substance: INSULIN GLARGINE
     Dosage: 1 UNIT
  2. INSULIN GLARGINE [Suspect]
     Active Substance: INSULIN GLARGINE
  3. LANTUS [Concomitant]
     Active Substance: INSULIN GLARGINE
     Indication: Type 1 diabetes mellitus
     Dosage: 1 UNIT HS

REACTIONS (3)
  - Confusional state [Unknown]
  - Irritability [Unknown]
  - Blood glucose decreased [Unknown]
